FAERS Safety Report 16443105 (Version 3)
Quarter: 2019Q4

REPORT INFORMATION
  Report Type: Other
  Country: IT (occurrence: IT)
  Receive Date: 20190617
  Receipt Date: 20191209
  Transmission Date: 20200122
  Serious: Yes (Hospitalization, Other)
  Sender: FDA-Public Use
  Company Number: IT-CELLTRION INC.-2019IT021900

PATIENT

DRUGS (1)
  1. RITUXIMAB (UNKNOWN) [Suspect]
     Active Substance: RITUXIMAB
     Indication: FACTOR VIII DEFICIENCY
     Dosage: 375 MG/M2 EVERY WEEK FOR 4 WEEKS
     Route: 065
     Dates: start: 2016, end: 201711

REACTIONS (9)
  - Drug ineffective [Unknown]
  - Hypertonia [Recovered/Resolved]
  - Stertor [Recovered/Resolved]
  - Tongue biting [Recovered/Resolved]
  - Product use issue [Unknown]
  - Product use in unapproved indication [Unknown]
  - Confusional state [Recovered/Resolved]
  - Chills [Recovered/Resolved]
  - Off label use [Unknown]

NARRATIVE: CASE EVENT DATE: 2017
